FAERS Safety Report 9110541 (Version 1)
Quarter: 2013Q1

REPORT INFORMATION
  Report Type: Spontaneous
  Country: US (occurrence: US)
  Receive Date: 20130219
  Receipt Date: 20130219
  Transmission Date: 20140127
  Serious: No
  Sender: FDA-Public Use
  Company Number: US-BRACCO-008187

PATIENT
  Sex: 0

DRUGS (2)
  1. ISOVUE-M [Suspect]
     Indication: IMAGING PROCEDURE
     Dosage: ADMINISTERED TO SEVERAL PATIENTS DURING THE END OF MAY TO THE BEGINNING OF JUNE 2012.
     Route: 008
     Dates: start: 2012, end: 2012
  2. ISOVUE-M [Suspect]
     Indication: PAIN
     Dosage: ADMINISTERED TO SEVERAL PATIENTS DURING THE END OF MAY TO THE BEGINNING OF JUNE 2012.
     Route: 008
     Dates: start: 2012, end: 2012

REACTIONS (2)
  - Poor quality drug administered [Unknown]
  - Off label use [Unknown]
